FAERS Safety Report 18722477 (Version 4)
Quarter: 2021Q2

REPORT INFORMATION
  Report Type: Report from Study
  Country: None (occurrence: FR)
  Receive Date: 20210111
  Receipt Date: 20210407
  Transmission Date: 20210717
  Serious: Yes (Hospitalization, Other)
  Sender: FDA-Public Use
  Company Number: FR-ABBVIE-21K-056-3721180-00

PATIENT
  Age: 24 Year
  Sex: Female
  Weight: 44 kg

DRUGS (4)
  1. HUMIRA [Suspect]
     Active Substance: ADALIMUMAB
     Dosage: WEEK 4
     Route: 058
     Dates: start: 20200713, end: 20200713
  2. HUMIRA [Suspect]
     Active Substance: ADALIMUMAB
     Indication: COLITIS ULCERATIVE
     Route: 058
     Dates: start: 20200622, end: 20200622
  3. HUMIRA [Suspect]
     Active Substance: ADALIMUMAB
     Dosage: WEEK 4
     Route: 058
     Dates: end: 20200801
  4. HUMIRA [Suspect]
     Active Substance: ADALIMUMAB
     Dosage: WEEK 2
     Route: 058
     Dates: start: 20200629, end: 20200629

REACTIONS (13)
  - Hyperleukocytosis [Unknown]
  - Asthenia [Unknown]
  - Erythema [Unknown]
  - C-reactive protein increased [Recovered/Resolved]
  - Palpitations [Unknown]
  - Hypophagia [Unknown]
  - General physical health deterioration [Unknown]
  - Frequent bowel movements [Unknown]
  - Colitis [Recovered/Resolved]
  - Pyrexia [Recovered/Resolved]
  - Weight decreased [Unknown]
  - Unevaluable event [Unknown]
  - Anaemia [Unknown]

NARRATIVE: CASE EVENT DATE: 2020
